FAERS Safety Report 14433024 (Version 1)
Quarter: 2018Q1

REPORT INFORMATION
  Report Type: Spontaneous
  Country: US (occurrence: US)
  Receive Date: 20180124
  Receipt Date: 20180124
  Transmission Date: 20180509
  Serious: No
  Sender: FDA-Public Use
  Company Number: US-BAYER-2018-009214

PATIENT
  Sex: Female

DRUGS (1)
  1. MIRALAX [Suspect]
     Active Substance: POLYETHYLENE GLYCOL 3350
     Indication: GASTROINTESTINAL DISORDER
     Dosage: ONE HALF DOSE 1-2 TIMES WEEKLY
     Route: 048

REACTIONS (7)
  - Influenza [Not Recovered/Not Resolved]
  - Vomiting [None]
  - Drug ineffective [Unknown]
  - Inappropriate schedule of drug administration [Unknown]
  - Gastrointestinal sounds abnormal [Not Recovered/Not Resolved]
  - Nausea [None]
  - Abdominal rigidity [Not Recovered/Not Resolved]

NARRATIVE: CASE EVENT DATE: 201801
